FAERS Safety Report 5745820-6 (Version None)
Quarter: 2008Q2

REPORT INFORMATION
  Report Type: 
  Country: None (occurrence: None)
  Receive Date: 20080520
  Receipt Date: 20080508
  Transmission Date: 20081010
  Serious: Yes (Hospitalization, Disabling)
  Sender: FDA-Public Use
  Company Number: GXKR2004IT00552

PATIENT
  Age: 76 Year
  Sex: Female

DRUGS (4)
  1. GABAPENTIN [Suspect]
     Indication: PARTIAL SEIZURES
     Dosage: 900 MG, QD; 300 MG, QD
     Dates: start: 20010801
  2. OXCARBAZEPINE [Suspect]
     Indication: PARTIAL SEIZURES
     Dosage: 600 MG, BID
  3. LACIDIPINE (LACIDIPINE) [Concomitant]
  4. ACETYLSALICYLIC ACID (ACETYSALICYLIC ACID) [Concomitant]

REACTIONS (2)
  - ASTERIXIS [None]
  - DRUG INTERACTION [None]
